FAERS Safety Report 13062786 (Version 6)
Quarter: 2019Q2

REPORT INFORMATION
  Report Type: Report from Study
  Country: PA (occurrence: PA)
  Receive Date: 20161226
  Receipt Date: 20190523
  Transmission Date: 20190711
  Serious: Yes (Death, Hospitalization)
  Sender: FDA-Public Use
  Company Number: PHHY2015PA082706

PATIENT
  Age: 43 Year
  Sex: Female

DRUGS (4)
  1. EXJADE [Suspect]
     Active Substance: DEFERASIROX
     Indication: PRODUCT USED FOR UNKNOWN INDICATION
     Dosage: 250 MG, UNK
     Route: 048
  2. OMEPRAZOLE. [Concomitant]
     Active Substance: OMEPRAZOLE
     Indication: PRODUCT USED FOR UNKNOWN INDICATION
     Route: 065
  3. EXJADE [Suspect]
     Active Substance: DEFERASIROX
     Dosage: 500 MG, UNK
     Route: 065
  4. FLUCONAZOLE. [Concomitant]
     Active Substance: FLUCONAZOLE
     Indication: PRODUCT USED FOR UNKNOWN INDICATION
     Route: 065

REACTIONS (21)
  - Malaise [Unknown]
  - Arterial disorder [Unknown]
  - Vaginal haemorrhage [Unknown]
  - Insomnia [Unknown]
  - Haemoglobin decreased [Not Recovered/Not Resolved]
  - Chills [Unknown]
  - Abdominal discomfort [Unknown]
  - Vomiting [Unknown]
  - Death [Fatal]
  - Viral infection [Unknown]
  - Sickle cell anaemia with crisis [Unknown]
  - White blood cell count increased [Unknown]
  - Blood iron increased [Unknown]
  - Bone pain [Recovering/Resolving]
  - Serum ferritin increased [Unknown]
  - Headache [Unknown]
  - Diarrhoea [Unknown]
  - Abdominal pain upper [Unknown]
  - Pain [Unknown]
  - Nausea [Unknown]
  - Depressed mood [Unknown]
